FAERS Safety Report 22634146 (Version 6)
Quarter: 2025Q3

REPORT INFORMATION
  Report Type: Spontaneous
  Country: US (occurrence: US)
  Receive Date: 20230623
  Receipt Date: 20250730
  Transmission Date: 20251021
  Serious: Yes (Hospitalization, Other)
  Sender: PFIZER
  Company Number: US-PFIZER INC-PV202300057746

PATIENT
  Age: 68 Year
  Sex: Female

DRUGS (2)
  1. XELJANZ [Suspect]
     Active Substance: TOFACITINIB CITRATE
     Indication: Rheumatoid arthritis
     Dosage: 5 MG BID (TWICE A DAY)
     Route: 048
  2. XELJANZ [Suspect]
     Active Substance: TOFACITINIB CITRATE
     Dosage: 5 MG QD(EVERY DAY)
     Route: 048

REACTIONS (6)
  - Haemoglobin decreased [Recovering/Resolving]
  - Anaemia [Unknown]
  - Leukaemia [Unknown]
  - Off label use [Unknown]
  - Illness [Unknown]
  - Benign neoplasm [Unknown]

NARRATIVE: CASE EVENT DATE: 20230401
